FAERS Safety Report 5015544-1 (Version None)
Quarter: 2006Q2

REPORT INFORMATION
  Report Type: 
  Country: None (occurrence: None)
  Receive Date: 20060425
  Receipt Date: 20060214
  Transmission Date: 20061013
  Serious: No
  Sender: FDA-Public Use
  Company Number: 2006-BP-01709BP

PATIENT

DRUGS (3)
  1. APTIVUS [Suspect]
     Dosage: SEE TEXT
     Route: 048
  2. RITONAVIR CAPSULES [Suspect]
     Dosage: SEE TEXT
  3. FUZEON [Concomitant]

REACTIONS (1)
  - DRUG INEFFECTIVE [None]
